FAERS Safety Report 21763569 (Version 5)
Quarter: 2023Q2

REPORT INFORMATION
  Report Type: Spontaneous
  Country: US (occurrence: US)
  Receive Date: 20221222
  Receipt Date: 20230414
  Transmission Date: 20230721
  Serious: Yes (Life-Threatening, Other)
  Sender: FDA-Public Use
  Company Number: US-GSKCCFUS-Case-01582444_AE-89412

PATIENT

DRUGS (4)
  1. BENLYSTA [Interacting]
     Active Substance: BELIMUMAB
     Indication: Product used for unknown indication
     Dosage: 400 MG FOR 1 VIAL
     Route: 042
     Dates: start: 20220915, end: 20220915
  2. BENLYSTA [Interacting]
     Active Substance: BELIMUMAB
     Dosage: 120 MG, 5 VIALS
     Route: 042
  3. BENLYSTA [Interacting]
     Active Substance: BELIMUMAB
     Dosage: 120 MG, 2 VIAL
     Route: 042
     Dates: end: 20220915
  4. TYLENOL [Interacting]
     Active Substance: ACETAMINOPHEN
     Indication: Product used for unknown indication
     Dosage: 1000 MG
     Dates: start: 20220915

REACTIONS (4)
  - Anaphylactic reaction [Recovered/Resolved]
  - Labelled drug-drug interaction issue [Unknown]
  - Labelled drug-disease interaction issue [Unknown]
  - Incorrect dose administered [Unknown]

NARRATIVE: CASE EVENT DATE: 20220915
